FAERS Safety Report 10267085 (Version 2)
Quarter: 2014Q2

REPORT INFORMATION
  Report Type: Spontaneous
  Country: US (occurrence: US)
  Receive Date: 20140630
  Receipt Date: 20140630
  Transmission Date: 20141212
  Serious: No
  Sender: FDA-Public Use
  Company Number: US-SHIRE-US201402722

PATIENT
  Sex: Female
  Weight: 73.92 kg

DRUGS (4)
  1. CINRYZE [Suspect]
     Indication: HEREDITARY ANGIOEDEMA
     Dosage: UNK (1000 UNITS), OTHER (EVERY 5 DAYS)
     Route: 042
     Dates: start: 20110629, end: 2013
  2. CINRYZE [Suspect]
     Indication: PROPHYLAXIS
  3. BENZOYL PEROXIDE W/ERYTHROMYCIN [Concomitant]
     Indication: PRODUCT USED FOR UNKNOWN INDICATION
     Dosage: UNK, UNKNOWN
     Route: 065
  4. TRETINOIN [Concomitant]
     Indication: PRODUCT USED FOR UNKNOWN INDICATION
     Dosage: UNK, UNKNOWN
     Route: 065

REACTIONS (5)
  - Drug dose omission [Unknown]
  - Inappropriate schedule of drug administration [Unknown]
  - Treatment noncompliance [Unknown]
  - Disturbance in social behaviour [Unknown]
  - Hereditary angioedema [Unknown]
